FAERS Safety Report 7795050-1 (Version None)
Quarter: 2011Q4

REPORT INFORMATION
  Report Type: 
  Country: None (occurrence: None)
  Receive Date: 20111004
  Receipt Date: 20110921
  Transmission Date: 20120403
  Serious: No
  Sender: FDA-Public Use
  Company Number: US-B.I. PHARMACEUTICALS,INC./RIDGEFIELD-2011-BP-07162BP

PATIENT
  Age: 76 Year
  Sex: Female

DRUGS (12)
  1. PRADAXA [Suspect]
     Dosage: 150 MG
     Route: 048
     Dates: start: 20110301, end: 20110301
  2. ASPIRIN [Concomitant]
     Dosage: 162 MG
  3. LISINOPRIL AND HYDROCHLOROTHIAZIDE [Concomitant]
  4. FUROSEMIDE [Concomitant]
  5. PRADAXA [Suspect]
     Dosage: 300 MG
     Route: 048
     Dates: start: 20110325
  6. SIMVASTATIN [Concomitant]
     Dosage: 80 MG
  7. MULTI-VITAMIN [Concomitant]
  8. OMEPRAZOLE [Concomitant]
     Dosage: 20 MG
  9. CARVEDILOL [Concomitant]
     Dosage: 12.5 MG
  10. JANUVIA [Concomitant]
     Dosage: 100 MG
  11. CALCIUM CARBONATE [Concomitant]
  12. PRADAXA [Suspect]
     Indication: ATRIAL FIBRILLATION
     Dosage: 300 MG
     Route: 048
     Dates: start: 20110224, end: 20110225

REACTIONS (5)
  - BALANCE DISORDER [None]
  - NAUSEA [None]
  - HEAD DISCOMFORT [None]
  - DIZZINESS [None]
  - HEADACHE [None]
